FAERS Safety Report 8962903 (Version 2)
Quarter: 2013Q2

REPORT INFORMATION
  Report Type: Report from Study
  Country: CA (occurrence: CA)
  Receive Date: 20121214
  Receipt Date: 20130405
  Transmission Date: 20140414
  Serious: Yes (Hospitalization)
  Sender: FDA-Public Use
  Company Number: CA-JNJFOC-20121203303

PATIENT
  Age: 53 Year
  Sex: Female
  Weight: 48 kg

DRUGS (2)
  1. REMICADE [Suspect]
     Indication: CROHN^S DISEASE
     Route: 042
  2. LAMIVUDINE [Concomitant]
     Indication: HEPATITIS B
     Route: 065

REACTIONS (2)
  - Weight decreased [Unknown]
  - Crohn^s disease [Unknown]
